FAERS Safety Report 5533454-8 (Version None)
Quarter: 2007Q4

REPORT INFORMATION
  Report Type: 
  Country: None (occurrence: None)
  Receive Date: 20071120
  Receipt Date: 20070731
  Transmission Date: 20080405
  Serious: No
  Sender: FDA-Public Use
  Company Number: WAES 0705USA02119

PATIENT
  Age: 61 Year
  Sex: Female
  Weight: 89.3586 kg

DRUGS (6)
  1. JANUVIA [Suspect]
     Dosage: 25 MG/PO
     Route: 048
     Dates: start: 20070413, end: 20070501
  2. DIOVAN [Concomitant]
  3. GLUCOPHAGE [Concomitant]
  4. LIPITOR [Concomitant]
  5. PREMARIN [Concomitant]
  6. TOPAMAX [Concomitant]

REACTIONS (1)
  - URTICARIA [None]
